FAERS Safety Report 19810410 (Version 1)
Quarter: 2021Q3

REPORT INFORMATION
  Report Type: Spontaneous
  Country: US (occurrence: US)
  Receive Date: 20210909
  Receipt Date: 20210909
  Transmission Date: 20211014
  Serious: No
  Sender: FDA-Public Use
  Company Number: US-VYNE PHARMACEUTICALS INC-2021-VYNE-US003307

PATIENT

DRUGS (2)
  1. ZILXI [Suspect]
     Active Substance: MINOCYCLINE HYDROCHLORIDE
     Indication: ACNE
     Dosage: UNK
     Route: 061
     Dates: start: 20210316, end: 20210513
  2. DISPENSER, LIQUID MEDICATION (NDA 213690) (DEVICE) [Suspect]
     Active Substance: DEVICE
     Indication: ACNE

REACTIONS (3)
  - Acne [Recovered/Resolved]
  - Off label use [Unknown]
  - Drug ineffective for unapproved indication [Unknown]

NARRATIVE: CASE EVENT DATE: 20210513
